FAERS Safety Report 17077413 (Version 1)
Quarter: 2019Q4

REPORT INFORMATION
  Report Type: Spontaneous
  Country: US (occurrence: US)
  Receive Date: 20191126
  Receipt Date: 20191126
  Transmission Date: 20200122
  Serious: No
  Sender: FDA-Public Use
  Company Number: US-009507513-1910USA016786

PATIENT
  Age: 22 Year
  Sex: Female

DRUGS (6)
  1. CRISABOROLE [Concomitant]
     Active Substance: CRISABOROLE
     Indication: INSOMNIA
  2. REMERON [Suspect]
     Active Substance: MIRTAZAPINE
     Indication: DERMATITIS ATOPIC
     Dosage: LOW DOSE, AT NIGHT
  3. REMERON [Suspect]
     Active Substance: MIRTAZAPINE
     Indication: INSOMNIA
  4. CRISABOROLE [Concomitant]
     Active Substance: CRISABOROLE
     Indication: DERMATITIS ATOPIC
     Dosage: UNK
  5. MOMETASONE FUROATE. [Concomitant]
     Active Substance: MOMETASONE FUROATE
     Indication: INSOMNIA
  6. MOMETASONE FUROATE. [Concomitant]
     Active Substance: MOMETASONE FUROATE
     Indication: DERMATITIS ATOPIC
     Dosage: UNK

REACTIONS (1)
  - Off label use [Unknown]
